FAERS Safety Report 20451687 (Version 1)
Quarter: 2022Q1

REPORT INFORMATION
  Report Type: Spontaneous
  Country: US (occurrence: US)
  Receive Date: 20220209
  Receipt Date: 20220209
  Transmission Date: 20220423
  Serious: No
  Sender: FDA-Public Use
  Company Number: US-SA-SAC20220203001609

PATIENT
  Age: 32 Year
  Sex: Female

DRUGS (5)
  1. DUPIXENT [Suspect]
     Active Substance: DUPILUMAB
     Indication: Dermatitis atopic
     Dosage: 600 MG, 1X (2 PENS)
     Route: 058
     Dates: start: 20220120, end: 20220120
  2. BIOTIN [Concomitant]
     Active Substance: BIOTIN
  3. COLLAGEN [Concomitant]
     Active Substance: COLLAGEN
  4. VITAMIN C [Concomitant]
     Active Substance: ASCORBIC ACID
  5. CARBOXYMETHYLCELLULOSE SODIUM [Concomitant]
     Active Substance: CARBOXYMETHYLCELLULOSE SODIUM

REACTIONS (5)
  - Ocular hyperaemia [Recovered/Resolved]
  - Periorbital swelling [Recovered/Resolved]
  - Dry skin [Recovered/Resolved]
  - Eyelid margin crusting [Recovered/Resolved]
  - Eye pruritus [Recovered/Resolved]

NARRATIVE: CASE EVENT DATE: 20220127
